FAERS Safety Report 23377309 (Version 1)
Quarter: 2024Q1

REPORT INFORMATION
  Report Type: Spontaneous
  Country: FR (occurrence: FR)
  Receive Date: 20240108
  Receipt Date: 20240108
  Transmission Date: 20240410
  Serious: Yes (Hospitalization)
  Sender: FDA-Public Use
  Company Number: FR-MankindUS-000116

PATIENT
  Sex: Male

DRUGS (1)
  1. PHENYLEPHRINE HYDROCHLORIDE [Suspect]
     Active Substance: PHENYLEPHRINE HYDROCHLORIDE
     Indication: Retinopathy of prematurity
     Dosage: TWO DROPS OF 2.5%

REACTIONS (2)
  - Pallor [Recovered/Resolved]
  - Vasoconstriction [Recovered/Resolved]
